FAERS Safety Report 26043247 (Version 1)
Quarter: 2025Q4

REPORT INFORMATION
  Report Type: Spontaneous
  Country: A1 (occurrence: A1)
  Receive Date: 20251113
  Receipt Date: 20251113
  Transmission Date: 20260118
  Serious: No
  Sender: INTERNATIONAL MEDICATION SYSTEM
  Company Number: A1-International Medication Systems, Limited-2188498

PATIENT

DRUGS (1)
  1. PHYTONADIONE [Suspect]
     Active Substance: PHYTONADIONE

REACTIONS (2)
  - Device safety feature issue [Unknown]
  - No adverse event [Recovered/Resolved]
